FAERS Safety Report 4320490-2 (Version None)
Quarter: 2004Q1

REPORT INFORMATION
  Report Type: 
  Country: None (occurrence: None)
  Receive Date: 20040319
  Receipt Date: 20040319
  Transmission Date: 20041129
  Serious: Yes (Death, Hospitalization)
  Sender: FDA-Public Use
  Company Number: None

PATIENT
  Age: 58 Year
  Sex: Female
  Weight: 72.7 kg

DRUGS (6)
  1. FLUDARABIINE ATG 2G/IV/QD 080303-080403 [Suspect]
     Indication: CHEMOTHERAPY
     Dosage: 55 MG QD IV
     Route: 042
     Dates: start: 20030726, end: 20030801
  2. CYTOXAN [Suspect]
     Dosage: 1.8 G QD IV
     Route: 042
     Dates: start: 20030802, end: 20030803
  3. VALCYTA [Concomitant]
  4. PAMIDRONATE DISODIUM [Concomitant]
  5. AQUIAPHOR [Concomitant]
  6. VIOXX [Concomitant]

REACTIONS (3)
  - GENERAL PHYSICAL HEALTH DETERIORATION [None]
  - GRAFT VERSUS HOST DISEASE [None]
  - INFECTION [None]
